FAERS Safety Report 22053413 (Version 1)
Quarter: 2023Q1

REPORT INFORMATION
  Report Type: Spontaneous
  Country: GB (occurrence: GB)
  Receive Date: 20230302
  Receipt Date: 20230302
  Transmission Date: 20230417
  Serious: Yes (Hospitalization)
  Sender: FDA-Public Use
  Company Number: GB-002147023-NVSC2023GB034533

PATIENT

DRUGS (5)
  1. DABRAFENIB [Suspect]
     Active Substance: DABRAFENIB
     Indication: Product used for unknown indication
     Dosage: UNK
     Route: 065
     Dates: start: 20220706
  2. DABRAFENIB [Suspect]
     Active Substance: DABRAFENIB
     Dosage: 20 MG, BIW (X2 WEEKLY)
     Route: 065
  3. TRAMETINIB [Suspect]
     Active Substance: TRAMETINIB
     Indication: Product used for unknown indication
     Dosage: UNK
     Route: 065
     Dates: start: 20220706
  4. TRAMETINIB [Suspect]
     Active Substance: TRAMETINIB
     Dosage: 250 MG, QD
     Route: 065
  5. CEPHALEXIN [Concomitant]
     Active Substance: CEPHALEXIN
     Indication: Product used for unknown indication
     Dosage: 112.5 MG, QD
     Route: 065

REACTIONS (18)
  - Heart rate increased [Unknown]
  - Pyrexia [Unknown]
  - Seborrhoeic dermatitis [Unknown]
  - Skin exfoliation [Unknown]
  - Papule [Unknown]
  - Ear inflammation [Unknown]
  - Illness [Unknown]
  - Crying [Unknown]
  - Hypophagia [Unknown]
  - Irritability [Unknown]
  - Lethargy [Unknown]
  - Rhinitis [Unknown]
  - Skin lesion [Unknown]
  - Dry skin [Unknown]
  - Erythema [Unknown]
  - Rash [Unknown]
  - Pruritus [Unknown]
  - Nasal congestion [Unknown]

NARRATIVE: CASE EVENT DATE: 20230217
